FAERS Safety Report 5454405-0 (Version None)
Quarter: 2007Q3

REPORT INFORMATION
  Report Type: 
  Country: None (occurrence: None)
  Receive Date: 20070917
  Receipt Date: 20060821
  Transmission Date: 20080115
  Serious: No
  Sender: FDA-Public Use
  Company Number: US-ASTRAZENECA-2006UW16551

PATIENT
  Sex: Male
  Weight: 59.1 kg

DRUGS (1)
  1. SEROQUEL [Suspect]
     Indication: BIPOLAR DISORDER
     Route: 048
     Dates: start: 20060801

REACTIONS (2)
  - ABNORMAL BEHAVIOUR [None]
  - DRUG SCREEN FALSE POSITIVE [None]
